FAERS Safety Report 5498907-X (Version None)
Quarter: 2007Q4

REPORT INFORMATION
  Report Type: 
  Country: None (occurrence: None)
  Receive Date: 20071026
  Receipt Date: 20070927
  Transmission Date: 20080405
  Serious: No
  Sender: FDA-Public Use
  Company Number: A0668361A

PATIENT
  Age: 53 Year
  Sex: Female

DRUGS (8)
  1. ADVAIR DISKUS 100/50 [Suspect]
     Indication: ASTHMA
     Dosage: 1PUFF PER DAY
     Route: 055
     Dates: start: 20051201
  2. SINGULAIR [Suspect]
     Indication: ASTHMA
     Route: 065
  3. LUTEIN [Concomitant]
  4. OMEGA 3 [Concomitant]
  5. TYLENOL (CAPLET) [Concomitant]
  6. ADVIL [Concomitant]
  7. GLUCOSAMINE [Concomitant]
  8. CALCIUM [Concomitant]

REACTIONS (5)
  - ARTHRALGIA [None]
  - ARTHRITIS [None]
  - BACK PAIN [None]
  - NECK PAIN [None]
  - PAIN [None]
